FAERS Safety Report 21617880 (Version 1)
Quarter: 2022Q4

REPORT INFORMATION
  Report Type: Spontaneous
  Country: AU (occurrence: AU)
  Receive Date: 20221119
  Receipt Date: 20221119
  Transmission Date: 20230112
  Serious: Yes (Other)
  Sender: FDA-Public Use
  Company Number: AU-ABBVIE-4143440

PATIENT

DRUGS (4)
  1. LEUPROLIDE ACETATE [Suspect]
     Active Substance: LEUPROLIDE ACETATE
     Indication: Prostate cancer
     Route: 030
     Dates: start: 20220328
  2. NITROLINGUAL [Concomitant]
     Active Substance: NITROGLYCERIN
     Indication: Product used for unknown indication
     Route: 065
  3. HEPARIN [Concomitant]
     Active Substance: HEPARIN SODIUM
     Indication: Product used for unknown indication
     Route: 065
  4. DERMAID [Concomitant]
     Indication: Product used for unknown indication
     Route: 065

REACTIONS (14)
  - Chest discomfort [Unknown]
  - Chest pain [Unknown]
  - Poor venous access [Unknown]
  - Peripheral swelling [Unknown]
  - Angina pectoris [Unknown]
  - Pruritus [Unknown]
  - Paraesthesia [Unknown]
  - Pollakiuria [Unknown]
  - Dizziness [Unknown]
  - Constipation [Unknown]
  - Hypoaesthesia [Unknown]
  - Contusion [Unknown]
  - Rash [Unknown]
  - Dysphagia [Recovered/Resolved]

NARRATIVE: CASE EVENT DATE: 20220101
